FAERS Safety Report 4551172-X (Version None)
Quarter: 2005Q1

REPORT INFORMATION
  Report Type: 
  Country: None (occurrence: None)
  Receive Date: 20050111
  Receipt Date: 20041230
  Transmission Date: 20050727
  Serious: Yes (Hospitalization)
  Sender: FDA-Public Use
  Company Number: 2004-BP-14137BP

PATIENT
  Age: 68 Year
  Sex: Male

DRUGS (1)
  1. MOBIC [Suspect]
     Indication: ARTHRITIS
     Dosage: SEE TEXT  PO
     Route: 048
     Dates: start: 20040101

REACTIONS (5)
  - BLADDER OBSTRUCTION [None]
  - BLOOD URINE PRESENT [None]
  - HAEMOGLOBIN DECREASED [None]
  - HAEMORRHAGE [None]
  - URINARY RETENTION [None]
